FAERS Safety Report 4992887-9 (Version None)
Quarter: 2006Q2

REPORT INFORMATION
  Report Type: 
  Country: None (occurrence: None)
  Receive Date: 20060504
  Receipt Date: 20051012
  Transmission Date: 20061013
  Serious: Yes (Hospitalization, Other)
  Sender: FDA-Public Use
  Company Number: PR-MERCK-0510USA07372

PATIENT
  Age: 69 Year
  Sex: Male
  Weight: 77 kg

DRUGS (4)
  1. VIOXX [Suspect]
     Indication: ARTHRALGIA
     Route: 048
     Dates: start: 20030201, end: 20040201
  2. VIOXX [Suspect]
     Route: 048
     Dates: start: 20000101, end: 20010101
  3. PRINIVIL [Concomitant]
     Route: 048
     Dates: start: 19950101
  4. ATENOLOL [Concomitant]
     Route: 065
     Dates: start: 19990101

REACTIONS (4)
  - ACUTE MYOCARDIAL INFARCTION [None]
  - CEREBROVASCULAR ACCIDENT [None]
  - CORONARY ARTERY DISEASE [None]
  - CORONARY ARTERY OCCLUSION [None]
